FAERS Safety Report 21628187 (Version 2)
Quarter: 2022Q4

REPORT INFORMATION
  Report Type: Report from Study
  Country: US (occurrence: US)
  Receive Date: 20221122
  Receipt Date: 20221123
  Transmission Date: 20230113
  Serious: No
  Sender: FDA-Public Use
  Company Number: US-002147023-NVSC2022US261448

PATIENT
  Sex: Female

DRUGS (1)
  1. COSENTYX [Suspect]
     Active Substance: SECUKINUMAB
     Indication: Psoriasis
     Dosage: 300 UG, QMO (MAINTENANCE DOSE 07 NOV) (Q 4 WEEKS)
     Route: 058

REACTIONS (4)
  - Psoriasis [Unknown]
  - Pruritus [Unknown]
  - Rash [Unknown]
  - Scratch [Unknown]
